FAERS Safety Report 19743424 (Version 1)
Quarter: 2021Q3

REPORT INFORMATION
  Report Type: Spontaneous
  Country: US (occurrence: US)
  Receive Date: 20210825
  Receipt Date: 20210825
  Transmission Date: 20211014
  Serious: Yes (Death, Other)
  Sender: FDA-Public Use
  Company Number: US-ELI_LILLY_AND_COMPANY-US202108009063

PATIENT
  Age: 69 Year
  Sex: Female

DRUGS (1)
  1. GEMZAR [Suspect]
     Active Substance: GEMCITABINE HYDROCHLORIDE
     Indication: PRODUCT USED FOR UNKNOWN INDICATION
     Dosage: 1800 MG, UNKNOWN
     Route: 065
     Dates: start: 20200406, end: 20201112

REACTIONS (4)
  - Maculopathy [Not Recovered/Not Resolved]
  - Death [Fatal]
  - Cataract nuclear [Unknown]
  - Vitreous degeneration [Unknown]

NARRATIVE: CASE EVENT DATE: 20201104
